FAERS Safety Report 12631716 (Version 2)
Quarter: 2016Q3

REPORT INFORMATION
  Report Type: Spontaneous
  Country: US (occurrence: US)
  Receive Date: 20160808
  Receipt Date: 20160808
  Transmission Date: 20161109
  Serious: No
  Sender: FDA-Public Use
  Company Number: US-BEH-2016060782

PATIENT
  Sex: Male
  Weight: 83 kg

DRUGS (23)
  1. FIBER LAX [Concomitant]
     Active Substance: CALCIUM POLYCARBOPHIL
  2. FUROSEMIDE. [Concomitant]
     Active Substance: FUROSEMIDE
  3. EPIPEN [Concomitant]
     Active Substance: EPINEPHRINE
  4. METFORMIN [Concomitant]
     Active Substance: METFORMIN HYDROCHLORIDE
  5. LIDOCAINE. [Concomitant]
     Active Substance: LIDOCAINE
  6. INDAPAMIDE. [Concomitant]
     Active Substance: INDAPAMIDE
  7. ASPIRIN. [Concomitant]
     Active Substance: ASPIRIN
  8. DICLOFENAC [Concomitant]
     Active Substance: DICLOFENAC
  9. DIPHENHYDRAMINE. [Concomitant]
     Active Substance: DIPHENHYDRAMINE
  10. PAROXETINE. [Concomitant]
     Active Substance: PAROXETINE
  11. BUPROPION XL [Concomitant]
     Active Substance: BUPROPION
  12. MULTIVITAMINS [Concomitant]
     Active Substance: VITAMINS
  13. FISH OIL [Concomitant]
     Active Substance: FISH OIL
  14. VICODIN HP [Concomitant]
     Active Substance: ACETAMINOPHEN\HYDROCODONE BITARTRATE
  15. FENOFIBRATE. [Concomitant]
     Active Substance: FENOFIBRATE
  16. ALPRAZOLAM. [Concomitant]
     Active Substance: ALPRAZOLAM
  17. LISINOPRIL. [Concomitant]
     Active Substance: LISINOPRIL
  18. HIZENTRA [Suspect]
     Active Substance: HUMAN IMMUNOGLOBULIN G
     Indication: IMMUNODEFICIENCY COMMON VARIABLE
     Route: 058
  19. CARVEDILOL. [Concomitant]
     Active Substance: CARVEDILOL
  20. CLOPIDOGREL [Concomitant]
     Active Substance: CLOPIDOGREL BISULFATE
  21. CLONIDINE. [Concomitant]
     Active Substance: CLONIDINE
  22. CRESTOR [Concomitant]
     Active Substance: ROSUVASTATIN CALCIUM
  23. LOSARTAN. [Concomitant]
     Active Substance: LOSARTAN

REACTIONS (1)
  - Sleep study [Unknown]
